FAERS Safety Report 20107500 (Version 1)
Quarter: 2021Q4

REPORT INFORMATION
  Report Type: Report from Study
  Country: PA (occurrence: PA)
  Receive Date: 20211124
  Receipt Date: 20211124
  Transmission Date: 20220303
  Serious: Yes (Other)
  Sender: FDA-Public Use
  Company Number: PA-NOVARTISPH-NVSC2021PA244256

PATIENT
  Age: 55 Year
  Sex: Female

DRUGS (3)
  1. EXFORGE [Suspect]
     Active Substance: AMLODIPINE BESYLATE\VALSARTAN
     Indication: Hypertension
     Dosage: 1 DF, QD, (10/320 MG)
     Route: 065
  2. EXFORGE HCT [Suspect]
     Active Substance: AMLODIPINE BESYLATE\HYDROCHLOROTHIAZIDE\VALSARTAN
     Indication: Hypertension
     Dosage: 1 DF, QD (10/320/25 MG)
     Route: 065
  3. ASPIRIN [Concomitant]
     Active Substance: ASPIRIN
     Indication: Haemoglobin increased
     Dosage: 1 DF, QD
     Route: 048
     Dates: start: 2020

REACTIONS (11)
  - Arrhythmia [Unknown]
  - Urinary retention [Unknown]
  - Hypotension [Recovered/Resolved]
  - Malaise [Unknown]
  - Abdominal discomfort [Unknown]
  - Nausea [Unknown]
  - Chest discomfort [Unknown]
  - Hypertension [Unknown]
  - Pollakiuria [Unknown]
  - Off label use [Unknown]
  - Drug ineffective [Unknown]

NARRATIVE: CASE EVENT DATE: 20211114
